FAERS Safety Report 22238474 (Version 3)
Quarter: 2023Q2

REPORT INFORMATION
  Report Type: Report from Study
  Country: US (occurrence: US)
  Receive Date: 20230421
  Receipt Date: 20230512
  Transmission Date: 20230721
  Serious: Yes (Other)
  Sender: FDA-Public Use
  Company Number: US-TEVA-2023-US-2878781

PATIENT
  Age: 28 Year
  Sex: Female

DRUGS (2)
  1. CLARAVIS [Suspect]
     Active Substance: ISOTRETINOIN
     Indication: Product used for unknown indication
     Dosage: 30 MILLIGRAM DAILY; 30 MG
     Dates: start: 20220129, end: 20230404
  2. CLARAVIS [Suspect]
     Active Substance: ISOTRETINOIN
     Dosage: 10 MG

REACTIONS (3)
  - Unintended pregnancy [Unknown]
  - Treatment noncompliance [Unknown]
  - Product prescribing error [Unknown]

NARRATIVE: CASE EVENT DATE: 20230101
